FAERS Safety Report 10757095 (Version 1)
Quarter: 2015Q1

REPORT INFORMATION
  Report Type: Spontaneous
  Country: US (occurrence: US)
  Receive Date: 20150203
  Receipt Date: 20150203
  Transmission Date: 20150721
  Serious: Yes (Hospitalization)
  Sender: FDA-Public Use
  Company Number: US-AUROBINDO-AUR-APL-2015-00745

PATIENT
  Age: 61 Year
  Sex: Female
  Weight: 59.86 kg

DRUGS (12)
  1. METOPROLOL 100MG [Suspect]
     Active Substance: METOPROLOL
     Indication: PALPITATIONS
  2. CRESTOR [Suspect]
     Active Substance: ROSUVASTATIN CALCIUM
     Indication: BLOOD CHOLESTEROL
     Dosage: 5 MG, DAILY
     Route: 048
     Dates: end: 201408
  3. LORAZEPAM. [Concomitant]
     Active Substance: LORAZEPAM
     Indication: NEUROPATHY PERIPHERAL
     Dosage: UNK
     Route: 065
  4. NEXIUM [Suspect]
     Active Substance: ESOMEPRAZOLE MAGNESIUM
     Indication: BARRETT^S OESOPHAGUS
  5. METOPROLOL 100MG [Suspect]
     Active Substance: METOPROLOL
     Indication: HEART RATE IRREGULAR
     Dosage: 100 MG, DAILY
     Route: 048
     Dates: start: 2012
  6. NEXIUM [Suspect]
     Active Substance: ESOMEPRAZOLE MAGNESIUM
     Indication: GASTROOESOPHAGEAL REFLUX DISEASE
     Dosage: 40 MG, TWO TIMES A DAY
     Route: 048
     Dates: start: 2005, end: 201409
  7. DIGOXIN. [Concomitant]
     Active Substance: DIGOXIN
     Indication: HEART RATE IRREGULAR
     Dosage: 250 ?G, DAILY
     Route: 048
     Dates: start: 2011
  8. NEXIUM [Suspect]
     Active Substance: ESOMEPRAZOLE MAGNESIUM
     Indication: POLYP
  9. DILTIAZEM [Concomitant]
     Active Substance: DILTIAZEM
     Indication: HEART RATE IRREGULAR
     Dosage: 120 MG, DAILY
     Route: 048
  10. LOSARTAN [Concomitant]
     Active Substance: LOSARTAN
     Indication: HEART RATE IRREGULAR
     Dosage: 100 MG, DAILY
     Route: 048
     Dates: start: 201412
  11. LOVASTATIN. [Concomitant]
     Active Substance: LOVASTATIN
     Indication: BLOOD CHOLESTEROL
     Dosage: 40 MG, DAILY
     Route: 048
     Dates: start: 201412
  12. MIRTAZAPINE. [Concomitant]
     Active Substance: MIRTAZAPINE
     Indication: NEUROPATHY PERIPHERAL
     Dosage: 50 MG, AT BED TIME
     Route: 048
     Dates: start: 201404

REACTIONS (22)
  - Palpitations [Unknown]
  - Neuropathy peripheral [Unknown]
  - Muscle spasms [Recovered/Resolved]
  - Barrett^s oesophagus [Unknown]
  - Off label use [Unknown]
  - Atrial fibrillation [Unknown]
  - Thrombosis [Recovered/Resolved]
  - Therapeutic response changed [Unknown]
  - Intentional product misuse [Unknown]
  - Off label use [Unknown]
  - Heart rate irregular [Not Recovered/Not Resolved]
  - Dry eye [Unknown]
  - Polyp [Unknown]
  - Feeling abnormal [Not Recovered/Not Resolved]
  - Dyspnoea [Recovered/Resolved]
  - Blood pressure increased [Not Recovered/Not Resolved]
  - Gastrooesophageal reflux disease [Unknown]
  - Balance disorder [Unknown]
  - Nasal congestion [Recovered/Resolved]
  - Eye disorder [Unknown]
  - Sinusitis [Unknown]
  - Drug dose omission [Unknown]

NARRATIVE: CASE EVENT DATE: 2000
